FAERS Safety Report 25846014 (Version 1)
Quarter: 2025Q3

REPORT INFORMATION
  Report Type: Spontaneous
  Country: CN (occurrence: CN)
  Receive Date: 20250925
  Receipt Date: 20250925
  Transmission Date: 20251021
  Serious: Yes (Other)
  Sender: STRIDES
  Company Number: None

PATIENT
  Age: 52 Year
  Sex: Female

DRUGS (3)
  1. PREDNISONE [Suspect]
     Active Substance: PREDNISONE
     Indication: Idiopathic interstitial pneumonia
     Route: 065
     Dates: start: 2019
  2. PREDNISONE [Suspect]
     Active Substance: PREDNISONE
     Route: 065
  3. AZATHIOPRINE [Suspect]
     Active Substance: AZATHIOPRINE
     Indication: Idiopathic interstitial pneumonia
     Route: 065
     Dates: start: 2019

REACTIONS (7)
  - Condition aggravated [Recovering/Resolving]
  - Idiopathic interstitial pneumonia [Recovering/Resolving]
  - Idiopathic interstitial pneumonia [Recovering/Resolving]
  - Corynebacterium infection [Recovered/Resolved]
  - Bacterial infection [Recovered/Resolved]
  - Whipple^s disease [Recovered/Resolved]
  - Off label use [Unknown]

NARRATIVE: CASE EVENT DATE: 20210101
